FAERS Safety Report 9814768 (Version 2)
Quarter: 2014Q1

REPORT INFORMATION
  Report Type: Spontaneous
  Country: US (occurrence: US)
  Receive Date: 20140113
  Receipt Date: 20140113
  Transmission Date: 20141002
  Serious: Yes (Hospitalization)
  Sender: FDA-Public Use
  Company Number: US-SA-2013SA098103

PATIENT
  Age: 57 Year
  Sex: Female

DRUGS (13)
  1. DOCETAXEL [Suspect]
     Indication: NON-SMALL CELL LUNG CANCER
     Route: 042
     Dates: start: 20130903
  2. VANCOMYCIN [Concomitant]
     Indication: INFECTION PROPHYLAXIS
     Route: 042
     Dates: start: 20130912, end: 20130912
  3. MORPHINE SULFATE [Concomitant]
     Indication: BACK PAIN
     Route: 048
  4. CLARITIN [Concomitant]
     Indication: SEASONAL ALLERGY
     Route: 048
  5. PANTOPRAZOLE [Concomitant]
     Indication: GASTROOESOPHAGEAL REFLUX DISEASE
     Route: 048
  6. LISINOPRIL [Concomitant]
     Indication: HYPERTENSION
     Route: 048
  7. ZANTAC [Concomitant]
     Indication: GASTROOESOPHAGEAL REFLUX DISEASE
     Route: 048
  8. ONDANSETRON [Concomitant]
     Indication: PROPHYLAXIS OF NAUSEA AND VOMITING
     Route: 048
  9. SALBUTAMOL [Concomitant]
     Indication: CHRONIC OBSTRUCTIVE PULMONARY DISEASE
  10. NORCO [Concomitant]
     Indication: BACK PAIN
     Dosage: DAILY DOSE: 10/325 MG
  11. POTASSIUM GLUCONATE [Concomitant]
     Indication: HYPOKALAEMIA
     Route: 048
  12. SILYMARIN [Concomitant]
  13. NEUPOGEN [Concomitant]
     Route: 058

REACTIONS (2)
  - Renal failure acute [Not Recovered/Not Resolved]
  - Dehydration [Not Recovered/Not Resolved]
